FAERS Safety Report 19592763 (Version 1)
Quarter: 2021Q3

REPORT INFORMATION
  Report Type: Report from Study
  Country: US (occurrence: US)
  Receive Date: 20210722
  Receipt Date: 20210722
  Transmission Date: 20211014
  Serious: No
  Sender: FDA-Public Use
  Company Number: NVSC2021US157297

PATIENT
  Age: 63 Year
  Sex: Female
  Weight: 64.85 kg

DRUGS (1)
  1. ENTRESTO [Suspect]
     Active Substance: SACUBITRIL\VALSARTAN
     Indication: CARDIAC FAILURE
     Dosage: 50 MG, BID (24.26 MG)
     Route: 048
     Dates: start: 20210702, end: 20210712

REACTIONS (4)
  - Mass [Unknown]
  - Hypersensitivity [Unknown]
  - Rash [Unknown]
  - Pruritus [Unknown]

NARRATIVE: CASE EVENT DATE: 20210709
